FAERS Safety Report 6370478-5 (Version None)
Quarter: 2009Q3

REPORT INFORMATION
  Report Type: 
  Country: None (occurrence: None)
  Receive Date: 20090923
  Receipt Date: 20090911
  Transmission Date: 20100115
  Serious: Yes (Hospitalization)
  Sender: FDA-Public Use
  Company Number: FR-PFIZER INC-2009237398

PATIENT
  Age: 56 Year

DRUGS (16)
  1. ZYVOXID [Suspect]
     Indication: LUNG INFECTION
     Dosage: 600 MG, 2X/DAY
     Route: 048
     Dates: start: 20090528, end: 20090615
  2. LAROXYL [Concomitant]
     Dosage: UNK
  3. NEURONTIN [Concomitant]
     Dosage: UNK MG, 2X/DAY
  4. LOXEN [Concomitant]
     Dosage: 50 MG, 2X/DAY
     Dates: start: 20090523
  5. NICOBION [Concomitant]
  6. MAG 2 [Concomitant]
  7. DUPHALAC [Concomitant]
  8. TAVANIC [Concomitant]
     Indication: INFECTION
     Dosage: UNK
     Dates: start: 20090526
  9. ROVAMYCINE [Concomitant]
     Indication: INFECTION
     Dosage: UNK
     Dates: start: 20090526
  10. OXYCONTIN [Concomitant]
  11. CLOMIPRAMINE [Concomitant]
     Dosage: 25 MG, 4X/DAY
     Dates: end: 20090520
  12. TRILEPTAL [Concomitant]
     Dosage: 150 MG, 2X/DAY
  13. STRONTIUM RANELATE [Concomitant]
     Dosage: UNK
  14. RILMENIDINE [Concomitant]
     Dosage: 1 MG, 2X/DAY
     Dates: end: 20090520
  15. FUROSEMIDE [Concomitant]
     Dosage: 40 MG, 1X/DAY
  16. DIFFU K [Concomitant]
     Dosage: UNK

REACTIONS (2)
  - POLYURIA [None]
  - THROMBOCYTOPENIA [None]
